FAERS Safety Report 18648276 (Version 1)
Quarter: 2020Q4

REPORT INFORMATION
  Report Type: Spontaneous
  Country: FR (occurrence: FR)
  Receive Date: 20201222
  Receipt Date: 20201222
  Transmission Date: 20210114
  Serious: Yes (Hospitalization)
  Sender: FDA-Public Use
  Company Number: FR-TEVA-2020-FR-1859517

PATIENT
  Age: 77 Year
  Sex: Male
  Weight: 65 kg

DRUGS (25)
  1. LEVOFLOXACINE ARROW [Suspect]
     Active Substance: LEVOFLOXACIN
     Indication: INFECTION
     Route: 065
     Dates: start: 20201030, end: 20201102
  2. ERYTHROMYCINE PANPHARMA [Suspect]
     Active Substance: ERYTHROMYCIN LACTOBIONATE
     Indication: SEPTIC SHOCK
     Dosage: 300 MG
     Route: 042
     Dates: start: 20201120
  3. NORADRENALINE MYLAN [Suspect]
     Active Substance: NOREPINEPHRINE\NOREPINEPHRINE BITARTRATE
     Indication: CIRCULATORY COLLAPSE
     Dosage: 6 MG
     Route: 042
     Dates: start: 20201120, end: 20201120
  4. ACICLOVIR MYLAN [Suspect]
     Active Substance: ACYCLOVIR
     Indication: HERPES SIMPLEX
     Dosage: 600 MG
     Route: 042
     Dates: start: 202011
  5. HYDROCORTISONE UPJOHN [Suspect]
     Active Substance: HYDROCORTISONE
     Indication: ADRENAL INSUFFICIENCY
     Dosage: 100 MG
     Route: 042
     Dates: start: 202011
  6. TERCIAN [Suspect]
     Active Substance: CYAMEMAZINE
     Indication: SEDATION
     Dosage: 300 MG
     Route: 042
     Dates: start: 20201114
  7. CEFTRIAXONE MYLAN [Suspect]
     Active Substance: CEFTRIAXONE
     Indication: INFECTION
     Route: 065
     Dates: start: 20201030, end: 20201107
  8. AMIODARONE [Suspect]
     Active Substance: AMIODARONE
     Indication: ATRIAL FIBRILLATION
     Route: 065
     Dates: start: 20201102
  9. LOVENOX [Suspect]
     Active Substance: ENOXAPARIN SODIUM
     Indication: ANTICOAGULANT THERAPY
     Route: 065
     Dates: start: 20201030, end: 20201102
  10. AMIKACINE MYLAN [Suspect]
     Active Substance: AMIKACIN
     Indication: SEPTIC SHOCK
     Route: 042
     Dates: start: 20201114, end: 20201114
  11. HEPARINE SODIQUE PANPHARMA [Suspect]
     Active Substance: HEPARIN SODIUM
     Indication: ANTICOAGULANT THERAPY
     Route: 065
     Dates: start: 202011
  12. VANCOMYCINE MYLAN [Suspect]
     Active Substance: VANCOMYCIN
     Indication: SEPTIC SHOCK
     Route: 042
     Dates: start: 20201114
  13. SUFENTANIL MYLAN [Suspect]
     Active Substance: SUFENTANIL
     Indication: SEDATION
     Route: 042
     Dates: start: 20201101
  14. MEROPENEM PANPHARMA [Suspect]
     Active Substance: MEROPENEM
     Indication: SEPTIC SHOCK
     Dosage: 3 GM
     Route: 042
     Dates: start: 20201114
  15. CISATRACURIUM. [Suspect]
     Active Substance: CISATRACURIUM
     Indication: ENDOTRACHEAL INTUBATION
     Route: 042
     Dates: start: 20201101
  16. METHYLPREDNISOLONE MYLAN [Suspect]
     Active Substance: METHYLPREDNISOLONE
     Indication: ADRENOCORTICAL STEROID THERAPY
     Route: 065
     Dates: start: 20201030
  17. MIDAZOLAM MYLAN [Suspect]
     Active Substance: MIDAZOLAM HYDROCHLORIDE
     Indication: SEDATION
     Dosage: 10 MG
     Route: 042
     Dates: start: 20201101
  18. ULTIVA [Suspect]
     Active Substance: REMIFENTANIL HYDROCHLORIDE
     Indication: PAIN
     Route: 042
  19. PROPOFOL. [Suspect]
     Active Substance: PROPOFOL
     Indication: SEDATION
     Dosage: 50 ML
     Route: 042
     Dates: start: 202011
  20. DEXAMETHASONE MYLAN [Suspect]
     Active Substance: DEXAMETHASONE
     Indication: ADRENOCORTICAL STEROID THERAPY
     Route: 042
     Dates: start: 20201030
  21. VALACYCLOVIR [Suspect]
     Active Substance: VALACYCLOVIR HYDROCHLORIDE
     Indication: HERPES SIMPLEX
     Route: 065
     Dates: start: 20201113, end: 20201113
  22. SMOFKABIVEN [Suspect]
     Active Substance: AMINO ACIDS\DEXTROSE\ELECTROLYTES NOS\SOYBEAN OIL
     Indication: PARENTERAL NUTRITION
     Route: 042
     Dates: start: 202011
  23. FUROSEMIDE. [Suspect]
     Active Substance: FUROSEMIDE
     Indication: DIURETIC THERAPY
     Route: 065
     Dates: start: 20201104
  24. NUTRYELT [Suspect]
     Active Substance: IRON\MINERALS\POTASSIUM IOD\SODIUM FLUORIDE\SODIUM MOLYBDATE\SODIUM SELENITE\ZINC
     Indication: PARENTERAL NUTRITION
     Route: 042
     Dates: start: 202011
  25. IOMERON [Suspect]
     Active Substance: IOMEPROL
     Indication: COMPUTERISED TOMOGRAM
     Dosage: 70 ML
     Route: 065
     Dates: start: 20201119, end: 20201119

REACTIONS (1)
  - Rash maculo-papular [Not Recovered/Not Resolved]

NARRATIVE: CASE EVENT DATE: 20201120
